FAERS Safety Report 7708117 (Version 3)
Quarter: 2012Q4

REPORT INFORMATION
  Report Type: 
  Country: US (occurrence: US)
  Receive Date: 20101214
  Receipt Date: 20120910
  Transmission Date: 20130627
  Serious: No
  Sender: FDA-Public Use
  Company Number: US-ASTRAZENECA-2010SE11087

PATIENT
  Age: 70 Year
  Sex: Female
  Weight: 52.2 kg

DRUGS (7)
  1. CRESTOR [Suspect]
     Indication: LOW DENSITY LIPOPROTEIN INCREASED
     Route: 048
     Dates: start: 20091028
  2. CRESTOR [Suspect]
     Indication: LOW DENSITY LIPOPROTEIN INCREASED
     Route: 048
  3. CRESTOR [Suspect]
     Indication: LOW DENSITY LIPOPROTEIN INCREASED
     Route: 048
     Dates: start: 201108, end: 201108
  4. ASPIRIN [Concomitant]
     Indication: CARDIOVASCULAR DISORDER
  5. LOSARTAN [Concomitant]
     Indication: HYPERTENSION
  6. DIOVAN [Concomitant]
  7. BABY ASA [Concomitant]

REACTIONS (9)
  - Burning sensation [Unknown]
  - Arthralgia [Recovered/Resolved]
  - Pain in extremity [Unknown]
  - Lipids abnormal [Unknown]
  - Pain [Unknown]
  - Pain [Unknown]
  - Influenza like illness [Unknown]
  - Off label use [Unknown]
  - Intentional drug misuse [Unknown]
